FAERS Safety Report 7597256-3 (Version None)
Quarter: 2011Q3

REPORT INFORMATION
  Report Type: 
  Country: None (occurrence: None)
  Receive Date: 20110708
  Receipt Date: 20101229
  Transmission Date: 20111222
  Serious: No
  Sender: FDA-Public Use
  Company Number: US-GLAXOSMITHKLINE-A0902558A

PATIENT
  Age: 6 Year
  Sex: Female

DRUGS (1)
  1. FLOVENT [Suspect]
     Indication: ASTHMA
     Dosage: 44MCG UNKNOWN
     Route: 055
     Dates: start: 20100901, end: 20101201

REACTIONS (4)
  - DEPRESSION [None]
  - DECREASED INTEREST [None]
  - SELF ESTEEM DECREASED [None]
  - PULMONARY FUNCTION TEST ABNORMAL [None]
